FAERS Safety Report 8890511 (Version 1)
Quarter: 2012Q4

REPORT INFORMATION
  Report Type: 
  Country: DE (occurrence: DE)
  Receive Date: 20121107
  Receipt Date: 20121107
  Transmission Date: 20130627
  Serious: Yes (Death, Other)
  Sender: FDA-Public Use
  Company Number: PHHY2012DE083414

PATIENT
  Age: 63 Year
  Sex: Female
  Weight: 68 kg

DRUGS (16)
  1. ZOLEDRONATE [Suspect]
     Indication: BONE DISORDER
     Dosage: 4 mg, every 4 weeks
     Route: 042
     Dates: start: 20091020, end: 20100504
  2. ZOLEDRONATE [Suspect]
     Indication: METASTASES TO BONE
  3. TAXOL [Concomitant]
     Indication: BREAST CANCER
     Dosage: 12 cycles
     Dates: start: 20091022
  4. BEVACIZUMAB [Concomitant]
     Dosage: UNK UKN, UNK
     Dates: start: 20091209
  5. RAMIPRIL 5 [Concomitant]
     Dosage: 1-0-1
  6. METOPROLOL [Concomitant]
     Dosage: 1-0-1
  7. SIMVASTATIN 20 [Concomitant]
     Dosage: 0-0-1
  8. PANTOZOL [Concomitant]
     Dosage: UNK UKN, 0-0-1
  9. METFORMIN [Concomitant]
     Dosage: 1-0-1/2
  10. GLIMEPIRIDE [Concomitant]
     Dosage: 3 mg, 0-0-1/2
  11. GLIMEPIRIDE [Concomitant]
     Dosage: 4 mg, 1/2-0-0
  12. ASA 100 [Concomitant]
     Dosage: UNK UKN, UNK
  13. CALCIUM [Concomitant]
     Dosage: 600 mg, per day
     Route: 048
  14. NAVELBINE [Concomitant]
     Dosage: UNK UKN, UNK
     Dates: start: 20100511
  15. VITAMIN D [Concomitant]
     Dosage: 400 IU, UNK
     Route: 048
  16. MITOMYCIN [Concomitant]
     Dosage: UNK UKN, UNK
     Dates: start: 20100511

REACTIONS (3)
  - Neoplasm progression [Fatal]
  - Malignant neoplasm progression [Fatal]
  - Blood creatinine increased [Recovered/Resolved]
